FAERS Safety Report 5564353-3 (Version None)
Quarter: 2007Q4

REPORT INFORMATION
  Report Type: 
  Country: None (occurrence: None)
  Receive Date: 20071218
  Receipt Date: 20071210
  Transmission Date: 20080405
  Serious: Yes (Death, Other)
  Sender: FDA-Public Use
  Company Number: PHHY2007BR00850

PATIENT
  Age: 75 Year
  Sex: Female
  Weight: 55 kg

DRUGS (12)
  1. EXELON [Suspect]
     Indication: DEMENTIA ALZHEIMER'S TYPE
     Dosage: UNK, QD
     Route: 048
     Dates: start: 20071112
  2. PRIMIDONE [Concomitant]
     Indication: DEMENTIA ALZHEIMER'S TYPE
     Dosage: ONE AND HALF TABLET/DAY
     Route: 048
     Dates: start: 20070901
  3. AKINETON [Concomitant]
     Dosage: 2 TABLETS PER DAY
     Route: 048
     Dates: start: 19970101, end: 20071013
  4. AKINETON [Concomitant]
     Dosage: 1/2 TABLET PER DAY
     Route: 048
     Dates: start: 20071113
  5. CAPTOPRIL [Concomitant]
     Indication: HYPERTENSION
     Dosage: HALF TABLET, BID
     Route: 048
     Dates: start: 20050101
  6. CLORANA [Concomitant]
     Dosage: HALF TABLET/DAY
     Route: 048
  7. RISPERIDONE [Concomitant]
     Indication: PARKINSON'S DISEASE
     Dosage: 1 MG, QD
     Route: 048
  8. PENTOBARBITAL CAP [Concomitant]
     Indication: SLEEP DISORDER
     Dosage: 1 MG, QHS
     Route: 048
     Dates: start: 19970101
  9. RIVOTRIL [Concomitant]
     Indication: DEPRESSION
     Dosage: 2 MG, QD
     Route: 048
     Dates: start: 20010101
  10. CITALOPRAM [Concomitant]
     Indication: DEPRESSION
     Dosage: 1 MG, QD
     Route: 048
     Dates: start: 20071013
  11. MACRODANTIN [Concomitant]
  12. ANTIBIOTICS [Concomitant]
     Indication: URINARY TRACT INFECTION

REACTIONS (12)
  - ARRHYTHMIA [None]
  - CARDIAC ARREST [None]
  - DIARRHOEA [None]
  - DYSSTASIA [None]
  - FAECAL VOLUME INCREASED [None]
  - HYPERHIDROSIS [None]
  - HYPOTHERMIA [None]
  - MALAISE [None]
  - PRURITUS [None]
  - RASH [None]
  - RESPIRATORY FAILURE [None]
  - TREMOR [None]
